FAERS Safety Report 5037925-2 (Version None)
Quarter: 2006Q2

REPORT INFORMATION
  Report Type: 
  Country: None (occurrence: None)
  Receive Date: 20060626
  Receipt Date: 20060616
  Transmission Date: 20061013
  Serious: Yes (Other)
  Sender: FDA-Public Use
  Company Number: 2006-06-0944

PATIENT
  Sex: Male
  Weight: 64 kg

DRUGS (2)
  1. VIRAFERONPEG [Suspect]
     Indication: HEPATITIS C
     Dosage: 100 UG QWK SUBCUTANEOUS
     Route: 058
     Dates: start: 20060605, end: 20060612
  2. REBETOL [Suspect]
     Indication: HEPATITIS C
     Dosage: 800 MG QD ORAL
     Route: 048
     Dates: start: 20060605, end: 20060615

REACTIONS (3)
  - HEPATOTOXICITY [None]
  - NEUTROPENIA [None]
  - THROMBOCYTOPENIA [None]
